FAERS Safety Report 9688835 (Version 1)
Quarter: 2013Q4

REPORT INFORMATION
  Report Type: Spontaneous
  Country: GB (occurrence: None)
  Receive Date: 20131112
  Receipt Date: 20131112
  Transmission Date: 20140711
  Serious: Yes (Other)
  Sender: FDA-Public Use
  Company Number: 2013-003595

PATIENT
  Age: 25 Year
  Sex: Male
  Weight: 76 kg

DRUGS (2)
  1. DORYX [Suspect]
     Indication: BACTERIAL INFECTION
     Route: 048
  2. CITALOPRAM (CITALOPRAM) [Concomitant]

REACTIONS (5)
  - Dyspnoea [None]
  - Nausea [None]
  - Headache [None]
  - Vomiting [None]
  - Malaise [None]
